FAERS Safety Report 13062174 (Version 1)
Quarter: 2016Q4

REPORT INFORMATION
  Report Type: Spontaneous
  Country: IT (occurrence: IT)
  Receive Date: 20161226
  Receipt Date: 20161226
  Transmission Date: 20170207
  Serious: Yes (Death, Hospitalization, Other)
  Sender: FDA-Public Use
  Company Number: IT-GILEAD-2016-0249488

PATIENT
  Age: 84 Year
  Sex: Female

DRUGS (2)
  1. ZYDELIG [Suspect]
     Active Substance: IDELALISIB
     Indication: CHRONIC LYMPHOCYTIC LEUKAEMIA
     Dosage: 100 MG, BID
     Route: 048
     Dates: start: 20161210, end: 20161215
  2. ZYDELIG [Suspect]
     Active Substance: IDELALISIB
     Dosage: UNK
     Route: 065
     Dates: start: 201601, end: 20161204

REACTIONS (5)
  - Colitis [Fatal]
  - Septic shock [Fatal]
  - Diarrhoea [Fatal]
  - Electrolyte imbalance [Unknown]
  - Dehydration [Unknown]

NARRATIVE: CASE EVENT DATE: 201612
